FAERS Safety Report 4996928-4 (Version None)
Quarter: 2006Q2

REPORT INFORMATION
  Report Type: 
  Country: None (occurrence: None)
  Receive Date: 20060509
  Receipt Date: 20060503
  Transmission Date: 20061013
  Serious: Yes (Hospitalization)
  Sender: FDA-Public Use
  Company Number: FR-GLAXOSMITHKLINE-B0422296A

PATIENT
  Age: 60 Year
  Sex: Female
  Weight: 51 kg

DRUGS (8)
  1. FORTUM [Suspect]
     Indication: PROPHYLACTIC CHEMOTHERAPY
     Route: 065
     Dates: start: 20060115, end: 20060221
  2. WELLVONE [Suspect]
     Indication: LUNG DISORDER
     Dosage: 750MG TWICE PER DAY
     Route: 048
     Dates: start: 20060115, end: 20060221
  3. LEXOMIL [Suspect]
     Route: 048
     Dates: start: 20060202, end: 20060221
  4. MOPRAL [Suspect]
     Indication: PROPHYLACTIC CHEMOTHERAPY
     Route: 048
     Dates: start: 20060202, end: 20060221
  5. TARGOCID [Suspect]
     Indication: PROPHYLACTIC CHEMOTHERAPY
     Route: 048
     Dates: start: 20060115, end: 20060221
  6. VFEND [Concomitant]
     Indication: PROPHYLACTIC CHEMOTHERAPY
     Route: 048
     Dates: end: 20060204
  7. CELLCEPT [Concomitant]
  8. CORTICOID [Concomitant]

REACTIONS (5)
  - EPIDERMAL NECROSIS [None]
  - ERYTHEMA MULTIFORME [None]
  - NECROLYTIC MIGRATORY ERYTHEMA [None]
  - PRURIGO [None]
  - PYREXIA [None]
